FAERS Safety Report 4345431-3 (Version None)
Quarter: 2004Q2

REPORT INFORMATION
  Report Type: 
  Country: None (occurrence: None)
  Receive Date: 20040421
  Receipt Date: 20040408
  Transmission Date: 20050107
  Serious: No
  Sender: FDA-Public Use
  Company Number: 2004206993JP

PATIENT
  Age: 28 Year
  Sex: Female

DRUGS (1)
  1. SOLU-MEDROL [Suspect]
     Indication: SUDDEN HEARING LOSS
     Dosage: 250 MG, QD, IV
     Route: 042
     Dates: start: 20040330

REACTIONS (4)
  - EYELID OEDEMA [None]
  - PRURITUS [None]
  - RHINORRHOEA [None]
  - URTICARIA [None]
